FAERS Safety Report 9447869 (Version 1)
Quarter: 2013Q3

REPORT INFORMATION
  Report Type: Spontaneous
  Country: FR (occurrence: FR)
  Receive Date: 20130808
  Receipt Date: 20130808
  Transmission Date: 20140515
  Serious: Yes (Hospitalization)
  Sender: FDA-Public Use
  Company Number: FR-BRISTOL-MYERS SQUIBB COMPANY-19166420

PATIENT
  Age: 71 Year
  Sex: Female

DRUGS (5)
  1. GLUCOPHAGE TABS [Suspect]
     Indication: DIABETES MELLITUS
     Route: 048
     Dates: end: 201301
  2. NOVATREX [Suspect]
     Indication: RHEUMATOID ARTHRITIS
     Dosage: NOVATREX 2.5 MG (METHOTREXATE). 1DF: 5 DOSAGE FORMS?0.7143 DF
     Route: 048
     Dates: start: 2012, end: 20121220
  3. NOVONORM [Suspect]
     Indication: DIABETES MELLITUS
     Dosage: 1 MG
     Route: 048
     Dates: start: 20121215, end: 20130103
  4. PRADAXA [Suspect]
     Route: 048
     Dates: end: 20130103
  5. DIAMICRON [Suspect]
     Indication: DIABETES MELLITUS
     Route: 048
     Dates: end: 20121215

REACTIONS (3)
  - Thrombocytopenia [Recovered/Resolved]
  - Neutropenia [Recovered/Resolved]
  - Anaemia [Not Recovered/Not Resolved]
